FAERS Safety Report 5612822-X (Version None)
Quarter: 2008Q1

REPORT INFORMATION
  Report Type: 
  Country: None (occurrence: None)
  Receive Date: 20080128
  Receipt Date: 20080117
  Transmission Date: 20080703
  Serious: Yes (Hospitalization)
  Sender: FDA-Public Use
  Company Number: 2007-04099

PATIENT
  Sex: Female
  Weight: 68 kg

DRUGS (11)
  1. VELCADE [Suspect]
     Indication: MULTIPLE MYELOMA
     Dosage: SEE IMAGE
     Route: 042
     Dates: start: 20071128
  2. VELCADE [Suspect]
     Indication: MULTIPLE MYELOMA
     Dosage: SEE IMAGE
     Route: 042
     Dates: start: 20071206
  3. DEXAMETHASONE TAB [Suspect]
     Indication: MULTIPLE MYELOMA
     Dosage: 40.00 MG, ORAL
     Route: 048
     Dates: start: 20071206
  4. NATRIUM GENTISICUM (SODIUM GENTISATE) [Concomitant]
  5. GRANISETRON  HCL [Concomitant]
  6. HYDROMORPHONE HCL [Concomitant]
  7. ACETAMINOPHEN [Concomitant]
  8. ESOMEPRAZOLE (ESOMEPRAZOLE) [Concomitant]
  9. FENTANYL [Concomitant]
  10. DALTEPARIN SODIUM [Concomitant]
  11. DICLOFENAC (DICLOFENAC) [Concomitant]

REACTIONS (5)
  - CONSTIPATION [None]
  - HERPES SIMPLEX [None]
  - PAIN [None]
  - PYREXIA [None]
  - VOMITING [None]
